FAERS Safety Report 9559739 (Version 1)
Quarter: 2013Q3

REPORT INFORMATION
  Report Type: Spontaneous
  Country: US (occurrence: US)
  Receive Date: 20130927
  Receipt Date: 20130927
  Transmission Date: 20140515
  Serious: No
  Sender: FDA-Public Use
  Company Number: US-009507513-1309USA011611

PATIENT
  Age: 78 Year
  Sex: Male

DRUGS (1)
  1. JANUVIA [Suspect]
     Indication: TYPE 2 DIABETES MELLITUS
     Dosage: ONE HALF OF 100 MG TABLET BY CUTTING IT IN HALF
     Route: 048
     Dates: start: 20130920

REACTIONS (2)
  - Blood glucose increased [Not Recovered/Not Resolved]
  - Wrong technique in drug usage process [Unknown]
